FAERS Safety Report 20885312 (Version 2)
Quarter: 2022Q2

REPORT INFORMATION
  Report Type: Spontaneous
  Country: US (occurrence: US)
  Receive Date: 20220527
  Receipt Date: 20220623
  Transmission Date: 20220721
  Serious: No
  Sender: FDA-Public Use
  Company Number: US-JNJFOC-20220552976

PATIENT
  Age: 31 Year
  Sex: Male
  Weight: 96.248 kg

DRUGS (8)
  1. INVEGA SUSTENNA [Suspect]
     Active Substance: PALIPERIDONE PALMITATE
     Indication: Schizophrenia
     Dosage: MAINTENANCE INJECTION IN THE DELTOID
     Route: 030
     Dates: start: 20220328, end: 20220523
  2. INVEGA SUSTENNA [Suspect]
     Active Substance: PALIPERIDONE PALMITATE
  3. INVEGA SUSTENNA [Suspect]
     Active Substance: PALIPERIDONE PALMITATE
  4. PAROXETINE [Concomitant]
     Active Substance: PAROXETINE
     Dosage: NIGHT
     Route: 065
     Dates: start: 201703
  5. BUSPIRONE [Concomitant]
     Active Substance: BUSPIRONE HYDROCHLORIDE
     Dosage: MORNING
     Route: 065
     Dates: start: 202202
  6. BUPROPION [Concomitant]
     Active Substance: BUPROPION
     Dosage: MORNING
     Route: 065
     Dates: start: 20220314
  7. BENZTROPINE [Concomitant]
     Active Substance: BENZTROPINE
     Dosage: MORNING
     Route: 065
     Dates: start: 201608
  8. LAMOTRIGINE [Concomitant]
     Active Substance: LAMOTRIGINE
     Dosage: MORNING
     Route: 065
     Dates: start: 201701

REACTIONS (2)
  - Injection site reaction [Recovered/Resolved]
  - Hypersensitivity [Unknown]

NARRATIVE: CASE EVENT DATE: 20220523
